FAERS Safety Report 20543268 (Version 1)
Quarter: 2022Q1

REPORT INFORMATION
  Report Type: Spontaneous
  Country: US (occurrence: US)
  Receive Date: 20220302
  Receipt Date: 20220302
  Transmission Date: 20220424
  Serious: No
  Sender: FDA-Public Use
  Company Number: US-PFIZER INC-202200299667

PATIENT
  Age: 51 Year
  Sex: Female
  Weight: 43.09 kg

DRUGS (4)
  1. PROCARDIA [Suspect]
     Active Substance: NIFEDIPINE
     Indication: Raynaud^s phenomenon
     Dosage: 20 MG, 3X/DAY
  2. PROCARDIA [Suspect]
     Active Substance: NIFEDIPINE
     Indication: Lupus-like syndrome
  3. PROCARDIA [Suspect]
     Active Substance: NIFEDIPINE
     Indication: Brain neoplasm
  4. VIAGRA [Suspect]
     Active Substance: SILDENAFIL CITRATE
     Indication: Raynaud^s phenomenon
     Dosage: 20 MG, 3X/DAY

REACTIONS (4)
  - Off label use [Unknown]
  - Off label use [Unknown]
  - Product use issue [Unknown]
  - Infection [Unknown]

NARRATIVE: CASE EVENT DATE: 20220101
